FAERS Safety Report 4990670-1 (Version None)
Quarter: 2006Q2

REPORT INFORMATION
  Report Type: 
  Country: None (occurrence: None)
  Receive Date: 20060427
  Receipt Date: 20060412
  Transmission Date: 20061013
  Serious: Yes (Hospitalization)
  Sender: FDA-Public Use
  Company Number: CIO06004952

PATIENT
  Age: 77 Year
  Sex: Male
  Weight: 89.3 kg

DRUGS (3)
  1. CREST BAKING SODA WHITENING W/TARTAR PROTECTION, FRESH MINT FLAVOR(SOD [Suspect]
     Dosage: 1 APPLIC, 2/DAY FOR 10 DAYS, INTRAORAL
     Route: 048
     Dates: start: 20060329, end: 20060412
  2. CAMPHO-PHENIQUE (CAMPHOR, PHENOL) [Suspect]
     Dosage: 1 ONLY, ORAL
     Route: 048
  3. SLEEPING PILL [Concomitant]

REACTIONS (11)
  - ABDOMINAL PAIN UPPER [None]
  - DIZZINESS [None]
  - DYSPHAGIA [None]
  - DYSPNOEA [None]
  - GLOSSODYNIA [None]
  - HYPERSENSITIVITY [None]
  - ILL-DEFINED DISORDER [None]
  - PRURITUS [None]
  - SWOLLEN TONGUE [None]
  - THROAT TIGHTNESS [None]
  - UNEVALUABLE EVENT [None]
